FAERS Safety Report 7736687-5 (Version None)
Quarter: 2011Q3

REPORT INFORMATION
  Report Type: 
  Country: None (occurrence: None)
  Receive Date: 20110908
  Receipt Date: 20110830
  Transmission Date: 20111222
  Serious: Yes (Hospitalization)
  Sender: FDA-Public Use
  Company Number: US-JNJFOC-20110900222

PATIENT
  Sex: Female
  Weight: 145.15 kg

DRUGS (2)
  1. REMICADE [Suspect]
     Indication: PSORIATIC ARTHROPATHY
     Route: 042
  2. REMICADE [Suspect]
     Indication: PSORIASIS
     Route: 042

REACTIONS (3)
  - SUBCUTANEOUS ABSCESS [None]
  - PSORIATIC ARTHROPATHY [None]
  - VULVOVAGINAL MYCOTIC INFECTION [None]
